FAERS Safety Report 8428649-X (Version None)
Quarter: 2012Q2

REPORT INFORMATION
  Report Type: 
  Country: None (occurrence: None)
  Receive Date: 20120612
  Receipt Date: 20120521
  Transmission Date: 20120825
  Serious: Yes (Other)
  Sender: FDA-Public Use
  Company Number: US-BAYER-2012-042051

PATIENT
  Age: 21 Year
  Sex: Female
  Weight: 54.422 kg

DRUGS (3)
  1. MIRENA [Suspect]
     Indication: CONTRACEPTION
     Dosage: 20 ?G/D, CONT
     Route: 015
     Dates: start: 20120410, end: 20120417
  2. ACETAMINOPHEN W/ CODEINE [Concomitant]
     Dosage: UNK UNK, PRN
  3. ALBUTEROL SULATE [Concomitant]
     Dosage: UNK UNK, PRN

REACTIONS (2)
  - POST PROCEDURAL HAEMORRHAGE [None]
  - DEVICE DISLOCATION [None]
